FAERS Safety Report 6810374-X (Version None)
Quarter: 2010Q2

REPORT INFORMATION
  Report Type: 
  Country: None (occurrence: None)
  Receive Date: 20100630
  Receipt Date: 20100615
  Transmission Date: 20101027
  Serious: Yes (Other)
  Sender: FDA-Public Use
  Company Number: PHHY2010JP39576

PATIENT
  Sex: Male
  Weight: 68 kg

DRUGS (6)
  1. DIOVAN [Suspect]
     Indication: HYPERTENSION
     Dosage: 40 MG, QD
     Route: 048
     Dates: start: 20071102
  2. NORVASC [Suspect]
     Indication: HYPERTENSION
     Dosage: 2.5 MG
     Route: 048
     Dates: start: 20051130, end: 20051227
  3. NORVASC [Suspect]
     Dosage: 5 MG
     Route: 048
     Dates: start: 20051227, end: 20080627
  4. NORVASC [Suspect]
     Dosage: 2.5 MG
     Route: 048
     Dates: start: 20080627, end: 20080822
  5. NORVASC [Suspect]
     Dosage: 5 MG
     Route: 048
     Dates: start: 20080822
  6. SALOBEL [Concomitant]
     Dosage: 100 MG
     Route: 048
     Dates: start: 20090918

REACTIONS (3)
  - ARRHYTHMIA [None]
  - EXTRASYSTOLES [None]
  - MYOCARDIAL ISCHAEMIA [None]
